FAERS Safety Report 5523050-0 (Version None)
Quarter: 2007Q4

REPORT INFORMATION
  Report Type: 
  Country: None (occurrence: None)
  Receive Date: 20071119
  Receipt Date: 20071106
  Transmission Date: 20080405
  Serious: Yes (Other)
  Sender: FDA-Public Use
  Company Number: 2007335240

PATIENT
  Age: 27 Year
  Sex: Female
  Weight: 90.7194 kg

DRUGS (4)
  1. BENADRYL [Suspect]
     Indication: RASH
     Dosage: TOPICAL
     Route: 061
     Dates: start: 20071021
  2. BENADRYL [Suspect]
     Indication: RASH
     Dosage: ORAL
     Route: 048
     Dates: start: 20071022
  3. CHANTIX [Suspect]
     Indication: SMOKING CESSATION THERAPY
     Dosage: 0.5 TABLET ONCE, ORAL
     Route: 048
     Dates: start: 20071021, end: 20071021
  4. PREDNISONE [Suspect]
     Indication: RASH
     Dosage: TAPERING DOSES FROM 60 MG TO 40 MG
     Dates: start: 20071022

REACTIONS (6)
  - BURNING SENSATION [None]
  - DRUG EFFECT DECREASED [None]
  - ERYTHEMA [None]
  - PRURITUS [None]
  - SLEEP DISORDER [None]
  - URTICARIA [None]
